FAERS Safety Report 5706422-0 (Version None)
Quarter: 2008Q2

REPORT INFORMATION
  Report Type: 
  Country: None (occurrence: None)
  Receive Date: 20080411
  Receipt Date: 20080331
  Transmission Date: 20081010
  Serious: Yes (Other)
  Sender: FDA-Public Use
  Company Number: 2008AL002047

PATIENT
  Age: 7 Year
  Sex: Female

DRUGS (3)
  1. RANITIDINE [Suspect]
     Dosage: 2.5 ML;BID; PO
     Route: 048
     Dates: start: 20080306, end: 20080308
  2. DEXAMETHASONE TAB [Concomitant]
  3. ACETAMINOPHEN [Concomitant]

REACTIONS (2)
  - INSOMNIA [None]
  - PRURITUS GENERALISED [None]
